FAERS Safety Report 16389209 (Version 2)
Quarter: 2019Q2

REPORT INFORMATION
  Report Type: Spontaneous
  Country: US (occurrence: US)
  Receive Date: 20190604
  Receipt Date: 20190610
  Transmission Date: 20190711
  Serious: Yes (Hospitalization)
  Sender: FDA-Public Use
  Company Number: US-TAKEDA-2019TUS034696

PATIENT
  Age: 64 Year
  Sex: Female

DRUGS (3)
  1. DEXILANT [Suspect]
     Active Substance: DEXLANSOPRAZOLE
     Dosage: 60 MILLIGRAM, BID
     Route: 065
     Dates: start: 2019
  2. REGLAN [Concomitant]
     Active Substance: METOCLOPRAMIDE HYDROCHLORIDE
     Dosage: UNK
     Route: 065
     Dates: end: 201905
  3. DEXILANT [Suspect]
     Active Substance: DEXLANSOPRAZOLE
     Indication: COUGH
     Dosage: 60 MILLIGRAM, QD
     Route: 065
     Dates: start: 20180607, end: 201905

REACTIONS (2)
  - Transient ischaemic attack [Unknown]
  - Overdose [Unknown]

NARRATIVE: CASE EVENT DATE: 201905
